FAERS Safety Report 14681022 (Version 3)
Quarter: 2018Q2

REPORT INFORMATION
  Report Type: Spontaneous
  Country: TR (occurrence: TR)
  Receive Date: 20180326
  Receipt Date: 20180412
  Transmission Date: 20180711
  Serious: Yes (Other)
  Sender: FDA-Public Use
  Company Number: TR-ELI_LILLY_AND_COMPANY-TR201803009303

PATIENT
  Sex: Female

DRUGS (2)
  1. HUMATROPE [Suspect]
     Active Substance: SOMATROPIN
     Dosage: 0.8 MG, UNKNOWN
     Route: 065
     Dates: end: 201803
  2. HUMATROPE [Suspect]
     Active Substance: SOMATROPIN
     Indication: GROWTH RETARDATION
     Dosage: 0.75 MG, UNKNOWN
     Route: 065
     Dates: start: 2016

REACTIONS (4)
  - Platelet count decreased [Unknown]
  - Neutropenia [Unknown]
  - Leukopenia [Unknown]
  - Upper respiratory tract infection [Recovered/Resolved]
